FAERS Safety Report 6676910-1 (Version None)
Quarter: 2010Q2

REPORT INFORMATION
  Report Type: 
  Country: None (occurrence: None)
  Receive Date: 20100412
  Receipt Date: 20100329
  Transmission Date: 20101027
  Serious: Yes (Hospitalization, Other)
  Sender: FDA-Public Use
  Company Number: DE-ELI_LILLY_AND_COMPANY-DE201003002284

PATIENT
  Sex: Male
  Weight: 94.5 kg

DRUGS (16)
  1. EFFIENT [Suspect]
     Indication: PERCUTANEOUS CORONARY INTERVENTION
     Dosage: 10 MG, UNKNOWN
     Route: 048
     Dates: start: 20090401
  2. DELIX [Concomitant]
     Dosage: 2.5 MG, 2/D
     Route: 065
  3. SORTIS [Concomitant]
     Indication: HYPERCHOLESTEROLAEMIA
     Dosage: 10 MG, DAILY (1/D)
     Route: 065
     Dates: end: 20100103
  4. NATRILIX [Concomitant]
     Dosage: 2.5 MG, DAILY (1/D)
     Route: 065
  5. ASPIRIN [Concomitant]
     Dosage: 100 MG, DAILY (1/D)
     Route: 065
  6. FOLSAURE [Concomitant]
     Dosage: 5 MG, UNKNOWN
     Route: 065
  7. OMACOR [Concomitant]
     Dosage: UNK, UNKNOWN
     Route: 065
  8. ALLOPURINOL [Concomitant]
     Dosage: 300 MG, UNKNOWN
     Route: 065
  9. PANTOPRAZOL [Concomitant]
     Dosage: 20 MG, UNKNOWN
     Route: 065
  10. ATENOLOL [Concomitant]
     Dosage: 25 MG, 2/D
     Route: 065
  11. CREON [Concomitant]
     Dosage: 25000 D/F, 3/D
     Route: 065
  12. SITAGLIPTIN [Concomitant]
     Dosage: 100 MG, DAILY (1/D)
     Route: 065
  13. ZINKAMIN [Concomitant]
     Dosage: UNK, DAILY (1/D)
     Route: 065
  14. SABAL [Concomitant]
     Dosage: UNK, DAILY (1/D)
     Route: 065
  15. VITAMIN B-12 [Concomitant]
     Dosage: 2 ML, 6/W
     Route: 065
  16. PLAVIX [Concomitant]
     Dosage: UNK, UNKNOWN
     Route: 065
     Dates: end: 20090425

REACTIONS (4)
  - DEEP VEIN THROMBOSIS [None]
  - PLEURISY [None]
  - PNEUMONIA [None]
  - PULMONARY EMBOLISM [None]
